FAERS Safety Report 13663382 (Version 1)
Quarter: 2017Q2

REPORT INFORMATION
  Report Type: Spontaneous
  Country: US (occurrence: US)
  Receive Date: 20170617
  Receipt Date: 20170617
  Transmission Date: 20170830
  Serious: Yes (Other)
  Sender: FDA-Public Use
  Company Number: None

PATIENT
  Age: 22 Year
  Sex: Female
  Weight: 58.5 kg

DRUGS (2)
  1. IBUPROFEN. [Concomitant]
     Active Substance: IBUPROFEN
  2. CETIRIZINE HYDROCHLORIDE. [Suspect]
     Active Substance: CETIRIZINE HYDROCHLORIDE
     Indication: SEASONAL ALLERGY
     Dosage: QUANTITY:1 CAPSULE(S); AT BEDTIME?
     Route: 048
     Dates: start: 20170228, end: 20170615

REACTIONS (7)
  - Ear disorder [None]
  - Pain [None]
  - Nausea [None]
  - Viral upper respiratory tract infection [None]
  - Pruritus [None]
  - Lethargy [None]
  - Dizziness [None]

NARRATIVE: CASE EVENT DATE: 20170616
